FAERS Safety Report 6287610-4 (Version None)
Quarter: 2009Q3

REPORT INFORMATION
  Report Type: 
  Country: None (occurrence: None)
  Receive Date: 20090727
  Receipt Date: 20090727
  Transmission Date: 20100115
  Serious: No
  Sender: FDA-Public Use
  Company Number: None

PATIENT
  Age: 78 Year
  Sex: Female
  Weight: 78.9259 kg

DRUGS (1)
  1. OMNICEF [Suspect]
     Indication: SINUSITIS
     Dosage: 300 MGS. 2 X DAILY ORALLY
     Route: 048
     Dates: start: 20090702, end: 20090709

REACTIONS (3)
  - ANXIETY [None]
  - FATIGUE [None]
  - FEELING ABNORMAL [None]
